FAERS Safety Report 9577372 (Version 1)
Quarter: 2013Q4

REPORT INFORMATION
  Report Type: Spontaneous
  Country: US (occurrence: US)
  Receive Date: 20131001
  Receipt Date: 20131001
  Transmission Date: 20140711
  Serious: No
  Sender: FDA-Public Use
  Company Number: US-AMGEN-USASP2013008070

PATIENT
  Age: 58 Year
  Sex: Female
  Weight: 55.78 kg

DRUGS (7)
  1. ENBREL [Suspect]
     Indication: PSORIASIS
     Dosage: 50 MG, QWK
     Route: 058
  2. EFFEXOR [Concomitant]
     Dosage: 25 MG
  3. METHOTREXATE [Concomitant]
     Dosage: 2.5 MG
  4. CLOBETASOL 0.05% [Concomitant]
     Dosage: 0.05%
  5. ADVAIR [Concomitant]
     Dosage: 100/50
  6. MULTI-TABS                         /00958201/ [Concomitant]
     Dosage: UNK
  7. FOLIC ACID [Concomitant]
     Dosage: 20 MG

REACTIONS (1)
  - Therapeutic response decreased [Recovering/Resolving]
